FAERS Safety Report 5654916-9 (Version None)
Quarter: 2008Q1

REPORT INFORMATION
  Report Type: 
  Country: None (occurrence: None)
  Receive Date: 20080307
  Receipt Date: 20070906
  Transmission Date: 20080703
  Serious: No
  Sender: FDA-Public Use
  Company Number: A0679202A

PATIENT
  Sex: Female

DRUGS (5)
  1. REQUIP [Suspect]
     Indication: DRUG USE FOR UNKNOWN INDICATION
     Route: 048
  2. EFFEXOR [Concomitant]
  3. XANAX [Concomitant]
  4. UNKNOWN MEDICATION [Concomitant]
  5. LISINOPRIL [Concomitant]

REACTIONS (6)
  - DIARRHOEA [None]
  - DYSGEUSIA [None]
  - DYSKINESIA [None]
  - HYPOAESTHESIA [None]
  - NIGHT SWEATS [None]
  - TOOTH ABSCESS [None]
